FAERS Safety Report 12389821 (Version 1)
Quarter: 2016Q2

REPORT INFORMATION
  Report Type: Spontaneous
  Country: US (occurrence: US)
  Receive Date: 20160520
  Receipt Date: 20160520
  Transmission Date: 20160815
  Serious: Yes (Hospitalization)
  Sender: FDA-Public Use
  Company Number: US-BAYER-2016-089473

PATIENT
  Age: 45 Year
  Sex: Male

DRUGS (2)
  1. LEVAQUIN [Suspect]
     Active Substance: LEVOFLOXACIN
     Indication: PREOPERATIVE CARE
     Dosage: UNK
     Route: 042
  2. CIPROFLOXACIN. [Suspect]
     Active Substance: CIPROFLOXACIN
     Indication: GASTRIC INFECTION
     Dosage: 1 DF, UNK

REACTIONS (4)
  - Dyspnoea [Recovered/Resolved]
  - Unevaluable event [Recovered/Resolved]
  - Skin swelling [Recovered/Resolved]
  - Urticaria [Recovered/Resolved]
